FAERS Safety Report 5454023-4 (Version None)
Quarter: 2007Q3

REPORT INFORMATION
  Report Type: 
  Country: None (occurrence: None)
  Receive Date: 20070917
  Receipt Date: 20070228
  Transmission Date: 20080115
  Serious: No
  Sender: FDA-Public Use
  Company Number: US-ASTRAZENECA-2006UW06731

PATIENT
  Sex: Female
  Weight: 101.8 kg

DRUGS (6)
  1. SEROQUEL [Suspect]
     Indication: SCHIZOPHRENIA
     Dosage: APPROXIMATELY 100 TO 300 MG
     Route: 048
     Dates: start: 20020101, end: 20041001
  2. SEROQUEL [Suspect]
     Indication: BIPOLAR DISORDER
     Dosage: APPROXIMATELY 100 TO 300 MG
     Route: 048
     Dates: start: 20020101, end: 20041001
  3. SEROQUEL [Suspect]
     Indication: DEPRESSION
     Dosage: APPROXIMATELY 100 TO 300 MG
     Route: 048
     Dates: start: 20020101, end: 20041001
  4. ZYPREXA [Suspect]
  5. GEODON [Suspect]
     Dates: start: 20040301
  6. RISPERDAL [Suspect]
     Dates: start: 20020101, end: 20040301

REACTIONS (4)
  - BLOOD CHOLESTEROL INCREASED [None]
  - BLOOD TRIGLYCERIDES [None]
  - HYPERLIPIDAEMIA [None]
  - TYPE 2 DIABETES MELLITUS [None]
